FAERS Safety Report 7498326-0 (Version None)
Quarter: 2011Q2

REPORT INFORMATION
  Report Type: 
  Country: None (occurrence: None)
  Receive Date: 20110524
  Receipt Date: 20110510
  Transmission Date: 20111010
  Serious: Yes (Other)
  Sender: FDA-Public Use
  Company Number: US-BAYER-2011-041813

PATIENT
  Sex: Female

DRUGS (2)
  1. ALEVE (CAPLET) [Concomitant]
     Dosage: 220 MG, QD
  2. ALEVE (CAPLET) [Suspect]
     Dosage: 220 MG, QD
     Route: 048

REACTIONS (2)
  - DIARRHOEA [None]
  - FAECES DISCOLOURED [None]
